FAERS Safety Report 15711666 (Version 1)
Quarter: 2018Q4

REPORT INFORMATION
  Report Type: Spontaneous
  Country: US (occurrence: US)
  Receive Date: 20181212
  Receipt Date: 20181212
  Transmission Date: 20190205
  Serious: No
  Sender: FDA-Public Use
  Company Number: US-TEVA-2018-US-983573

PATIENT
  Age: 51 Year
  Sex: Female

DRUGS (1)
  1. APRI 28 [Suspect]
     Active Substance: DESOGESTREL\ETHINYL ESTRADIOL
     Indication: CONTRACEPTION
     Dosage: DESOGESTREL 0.15 MG+ ETHINYLESTRADIOL 0.03MG
     Route: 065
     Dates: start: 20181030

REACTIONS (2)
  - Menorrhagia [Unknown]
  - Product substitution issue [Unknown]

NARRATIVE: CASE EVENT DATE: 20181118
